FAERS Safety Report 6353352-X (Version None)
Quarter: 2009Q3

REPORT INFORMATION
  Report Type: 
  Country: None (occurrence: None)
  Receive Date: 20090912
  Receipt Date: 20090622
  Transmission Date: 20100115
  Serious: No
  Sender: FDA-Public Use
  Company Number: US-ABBOTT-08P-163-0475719-00

PATIENT
  Sex: Female
  Weight: 67.646 kg

DRUGS (7)
  1. HUMIRA [Suspect]
     Indication: RHEUMATOID ARTHRITIS
     Route: 050
     Dates: start: 20080701
  2. AXOTAL [Concomitant]
     Indication: HEADACHE
     Route: 048
  3. PHENERGAN [Concomitant]
     Indication: NAUSEA
     Route: 048
  4. LEFLUNOMIDE [Concomitant]
     Indication: RHEUMATOID ARTHRITIS
     Route: 048
  5. PREDNISONE [Concomitant]
     Indication: INFLAMMATION
     Route: 048
  6. SULINDAC [Concomitant]
     Indication: RHEUMATOID ARTHRITIS
     Route: 048
  7. HYDROCODONE BITARTRATE [Concomitant]
     Indication: PAIN
     Dosage: 7.5/325; 1 Q AM AND HS
     Route: 048

REACTIONS (7)
  - ABDOMINAL PAIN [None]
  - BACK PAIN [None]
  - BLOOD PRESSURE INCREASED [None]
  - CHEST PAIN [None]
  - GASTRITIS [None]
  - HEADACHE [None]
  - INCORRECT DOSE ADMINISTERED [None]
